FAERS Safety Report 7218080-7 (Version None)
Quarter: 2011Q1

REPORT INFORMATION
  Report Type: 
  Country: None (occurrence: None)
  Receive Date: 20110110
  Receipt Date: 20110105
  Transmission Date: 20110831
  Serious: Yes (Other)
  Sender: FDA-Public Use
  Company Number: US-ABBOTT-11P-163-0695466-00

PATIENT
  Sex: Male
  Weight: 113.5 kg

DRUGS (5)
  1. SINGULAIR [Concomitant]
     Indication: RESPIRATORY DISORDER
  2. ASPIRIN [Concomitant]
     Indication: FLUSHING
  3. ASPIRIN [Concomitant]
     Indication: PROPHYLAXIS
  4. NIASPAN [Suspect]
     Indication: BLOOD CHOLESTEROL INCREASED
     Dates: start: 19980101
  5. ALBUTEROL [Concomitant]
     Indication: RESPIRATORY DISORDER
     Route: 055

REACTIONS (9)
  - FLUSHING [None]
  - IMMUNOLOGY TEST [None]
  - FATIGUE [None]
  - PARAESTHESIA [None]
  - RENAL CYST [None]
  - BLOOD URINE PRESENT [None]
  - PRURITUS [None]
  - BLADDER CANCER [None]
  - CARCINOEMBRYONIC ANTIGEN INCREASED [None]
